FAERS Safety Report 19868579 (Version 5)
Quarter: 2021Q4

REPORT INFORMATION
  Report Type: Spontaneous
  Country: US (occurrence: US)
  Receive Date: 20210922
  Receipt Date: 20211230
  Transmission Date: 20220304
  Serious: Yes (Other)
  Sender: FDA-Public Use
  Company Number: US-BAYER-2021-213914

PATIENT
  Age: 19 Year
  Sex: Male

DRUGS (5)
  1. KOGENATE FS [Suspect]
     Active Substance: ANTIHEMOPHILIC FACTOR, HUMAN RECOMBINANT
     Indication: Haemorrhage prophylaxis
     Dosage: 2000 IU, UNK
  2. KOGENATE FS [Suspect]
     Active Substance: ANTIHEMOPHILIC FACTOR, HUMAN RECOMBINANT
     Indication: Haemorrhage prophylaxis
     Dosage: UNK; INFUSED ANOTHER DOSE
     Route: 042
     Dates: start: 20210907
  3. KOGENATE FS [Suspect]
     Active Substance: ANTIHEMOPHILIC FACTOR, HUMAN RECOMBINANT
     Indication: Haemorrhage prophylaxis
     Dosage: 2060 IU, ONCE
     Route: 042
     Dates: start: 20211015, end: 20211015
  4. KOGENATE FS [Suspect]
     Active Substance: ANTIHEMOPHILIC FACTOR, HUMAN RECOMBINANT
     Indication: Haemorrhage prophylaxis
     Dosage: 2060 IU, ONCE
     Route: 042
     Dates: start: 20211017, end: 20211017
  5. KOGENATE FS [Suspect]
     Active Substance: ANTIHEMOPHILIC FACTOR, HUMAN RECOMBINANT
     Indication: Haemorrhage prophylaxis
     Dosage: 1 DF, ONCE TO TREAT BUMP IN LEFT SHIN
     Route: 042

REACTIONS (10)
  - Haemorrhage [Recovered/Resolved]
  - Haemorrhage [None]
  - Joint injury [None]
  - Limb injury [None]
  - Limb injury [None]
  - Joint injury [None]
  - Arthralgia [None]
  - Treatment noncompliance [None]
  - Limb mass [Recovered/Resolved]
  - Influenza [None]

NARRATIVE: CASE EVENT DATE: 20210907
